FAERS Safety Report 17600514 (Version 1)
Quarter: 2020Q1

REPORT INFORMATION
  Report Type: Spontaneous
  Country: GB (occurrence: GB)
  Receive Date: 20200330
  Receipt Date: 20200330
  Transmission Date: 20200409
  Serious: Yes (Other)
  Sender: FDA-Public Use
  Company Number: GB-JNJFOC-20200339486

PATIENT
  Age: 80 Year
  Sex: Male
  Weight: 100 kg

DRUGS (12)
  1. AMLODIPINE [Concomitant]
     Active Substance: AMLODIPINE BESYLATE
     Indication: HYPERTENSION
     Dates: start: 20200210
  2. RAMIPRIL. [Concomitant]
     Active Substance: RAMIPRIL
     Dates: start: 20191209
  3. PREDNISOLONE. [Concomitant]
     Active Substance: PREDNISOLONE
     Dosage: 2 DF, QD
     Dates: start: 20200217
  4. ACETYLSALICYLIC ACID [Concomitant]
     Active Substance: ASPIRIN
     Dates: start: 20191209, end: 20200106
  5. CALCIPOTRIOL [Concomitant]
     Active Substance: CALCIPOTRIENE
     Indication: PSORIASIS
     Dosage: 2 DF, QD
     Dates: start: 20200114
  6. CODEINE PHOSPHATE [Concomitant]
     Active Substance: CODEINE PHOSPHATE
     Indication: PAIN
     Dosage: TAKE 1 OR 2 UP TO 4 TIMES/DAY
     Dates: start: 20200210, end: 20200213
  7. RIVAROXABAN [Suspect]
     Active Substance: RIVAROXABAN
     Indication: PRODUCT USED FOR UNKNOWN INDICATION
     Route: 048
     Dates: start: 20200106
  8. OMEPRAZOLE. [Concomitant]
     Active Substance: OMEPRAZOLE
     Dosage: 1 DF, QD
     Dates: start: 20191209, end: 20200303
  9. CASSIA OBOVATA [Concomitant]
     Indication: CONSTIPATION
     Dosage: TAKE 1 OR 2 AT NIGHT
     Dates: start: 20200224, end: 20200305
  10. DOVONEX [Concomitant]
     Active Substance: CALCIPOTRIENE
     Dosage: 2 DF, QD
     Dates: start: 20191209, end: 20200303
  11. BETAMETHASONE VALERATE. [Concomitant]
     Active Substance: BETAMETHASONE VALERATE
     Dosage: 2 DF, QD
     Dates: start: 20200114
  12. TAMSULOSIN HYDROCHLORIDE. [Concomitant]
     Active Substance: TAMSULOSIN HYDROCHLORIDE
     Dates: start: 20191209, end: 20200106

REACTIONS (4)
  - Polymyalgia rheumatica [Recovering/Resolving]
  - Myositis [Unknown]
  - Myalgia [Recovered/Resolved]
  - Musculoskeletal stiffness [Recovered/Resolved]

NARRATIVE: CASE EVENT DATE: 20200309
